FAERS Safety Report 7940905-8 (Version None)
Quarter: 2011Q4

REPORT INFORMATION
  Report Type: 
  Country: None (occurrence: None)
  Receive Date: 20111128
  Receipt Date: 20111114
  Transmission Date: 20120403
  Serious: No
  Sender: FDA-Public Use
  Company Number: US-B.I. PHARMACEUTICALS,INC./RIDGEFIELD-2011-BP-14966BP

PATIENT
  Sex: Female

DRUGS (12)
  1. ATENOLOL [Concomitant]
     Indication: ATRIAL FIBRILLATION
     Dosage: 50 MG
     Route: 048
     Dates: start: 19710101
  2. LASIX [Concomitant]
     Indication: OEDEMA PERIPHERAL
  3. PLENDIL [Concomitant]
     Indication: HYPERTENSION
     Dosage: 5 MG
     Route: 048
     Dates: start: 19710101
  4. POTASSIUM ACETATE [Concomitant]
     Dosage: 10 MEQ
     Route: 048
     Dates: start: 19710101
  5. HYDROCODONE [Concomitant]
     Indication: PAIN IN EXTREMITY
     Route: 048
     Dates: start: 20110601
  6. DIOVAN [Concomitant]
     Indication: HYPERTENSION
     Dosage: 80 MG
     Route: 048
     Dates: start: 19710101
  7. LEVOTHYROXINE SODIUM [Concomitant]
     Indication: HYPOTHYROIDISM
     Dosage: 0.05 MG
     Route: 048
     Dates: start: 20060101
  8. PRADAXA [Suspect]
     Indication: ATRIAL FIBRILLATION
     Dosage: 300 MG
     Route: 048
     Dates: start: 20110606
  9. LASIX [Concomitant]
     Indication: OEDEMA
     Dosage: 40 MG
     Route: 048
     Dates: start: 20010101
  10. DIGOXIN [Concomitant]
     Indication: ATRIAL FIBRILLATION
     Dosage: 0.125 MG
     Route: 048
     Dates: start: 19710101
  11. ISOSORBIDE DINITRATE [Concomitant]
     Route: 048
  12. PREMARIN [Concomitant]
     Indication: MENOPAUSE
     Dosage: 0.3 MG
     Route: 048
     Dates: start: 19710101

REACTIONS (5)
  - WEIGHT DECREASED [None]
  - SENSATION OF FOREIGN BODY [None]
  - OEDEMA PERIPHERAL [None]
  - DIARRHOEA [None]
  - INCISION SITE HAEMORRHAGE [None]
